FAERS Safety Report 25877871 (Version 1)
Quarter: 2025Q4

REPORT INFORMATION
  Report Type: Report from Study
  Country: US (occurrence: US)
  Receive Date: 20251003
  Receipt Date: 20251003
  Transmission Date: 20260118
  Serious: Yes (Other)
  Sender: NOVARTIS
  Company Number: US-002147023-NVSC2025US142764

PATIENT
  Age: 63 Year
  Sex: Female

DRUGS (1)
  1. LEQVIO [Suspect]
     Active Substance: INCLISIRAN SODIUM
     Indication: Product used for unknown indication
     Dosage: UNK
     Route: 058
     Dates: start: 20250807

REACTIONS (11)
  - Autoimmune disorder [Unknown]
  - Nephrolithiasis [Unknown]
  - Dizziness [Unknown]
  - Heart rate decreased [Unknown]
  - Muscle spasms [Unknown]
  - Gastritis [Unknown]
  - Glycosylated haemoglobin increased [Unknown]
  - Palpitations [Unknown]
  - Heart rate increased [Unknown]
  - Blood glucose increased [Not Recovered/Not Resolved]
  - Electric shock sensation [Unknown]

NARRATIVE: CASE EVENT DATE: 20250816
